FAERS Safety Report 16752089 (Version 1)
Quarter: 2019Q3

REPORT INFORMATION
  Report Type: Spontaneous
  Country: US (occurrence: US)
  Receive Date: 20190828
  Receipt Date: 20190828
  Transmission Date: 20191005
  Serious: Yes (Hospitalization)
  Sender: FDA-Public Use
  Company Number: US-PFIZER INC-2019217089

PATIENT
  Age: 88 Year
  Sex: Male
  Weight: 63.49 kg

DRUGS (2)
  1. VYNDAQEL [Suspect]
     Active Substance: TAFAMIDIS MEGLUMINE
     Indication: AMYLOIDOSIS
     Dosage: 80 MG, 1X/DAY (20 MG FOUR CAPSULES ONCE A DAY BY MOUTH)
     Route: 048
  2. XALATAN [Concomitant]
     Active Substance: LATANOPROST
     Dosage: 2 GTT, UNK
     Route: 047

REACTIONS (4)
  - Urinary tract infection [Recovered/Resolved]
  - Head injury [Recovered/Resolved]
  - Fall [Recovered/Resolved]
  - Weight fluctuation [Unknown]

NARRATIVE: CASE EVENT DATE: 2019
